FAERS Safety Report 4338121-4 (Version None)
Quarter: 2004Q2

REPORT INFORMATION
  Report Type: 
  Country: None (occurrence: None)
  Receive Date: 20040412
  Receipt Date: 20040402
  Transmission Date: 20050107
  Serious: Yes (Hospitalization)
  Sender: FDA-Public Use
  Company Number: 7785

PATIENT
  Age: 31 Year
  Sex: Female

DRUGS (2)
  1. BLEOMYCIN [Suspect]
     Indication: TERATOMA
     Dosage: 30 MG
     Route: 042
     Dates: start: 20040220, end: 20040220
  2. CYPROTERONE + ETHINYLOESTRADIOL [Concomitant]

REACTIONS (3)
  - INFLUENZA LIKE ILLNESS [None]
  - NEUTROPENIA [None]
  - PHARYNGITIS [None]
